FAERS Safety Report 9665055 (Version 4)
Quarter: 2014Q1

REPORT INFORMATION
  Report Type: Spontaneous
  Country: US (occurrence: US)
  Receive Date: 20131101
  Receipt Date: 20140115
  Transmission Date: 20141002
  Serious: Yes (Life-Threatening, Hospitalization, Disabling, Other)
  Sender: FDA-Public Use
  Company Number: US-009507513-1310USA013315

PATIENT
  Age: 46 Year
  Sex: Female

DRUGS (3)
  1. EMEND [Suspect]
     Dosage: 1 STANDARD DOSE OF 1
     Route: 042
     Dates: start: 20131010
  2. DOXORUBICIN [Suspect]
     Dosage: UNK
     Dates: start: 20131010
  3. CYTOXAN [Suspect]
     Dosage: UNK
     Dates: start: 20131010

REACTIONS (2)
  - Anaphylactic reaction [Recovered/Resolved]
  - Anaphylactic reaction [Recovering/Resolving]
